FAERS Safety Report 8241519-5 (Version None)
Quarter: 2012Q1

REPORT INFORMATION
  Report Type: 
  Country: None (occurrence: None)
  Receive Date: 20120328
  Receipt Date: 20120321
  Transmission Date: 20120608
  Serious: Yes (Hospitalization)
  Sender: FDA-Public Use
  Company Number: BR-PFIZER INC-2012074910

PATIENT
  Age: 68 Year
  Sex: Female

DRUGS (2)
  1. CELEBREX [Suspect]
     Indication: SPINAL DISORDER
     Dosage: 200 MG, 1X/DAY (IF PATIENT FEELS PAIN)
     Route: 048
     Dates: start: 20100101
  2. OLMESARTAN MEDOXOMIL [Concomitant]
     Indication: HYPERTENSION

REACTIONS (1)
  - SPINAL DISORDER [None]
